FAERS Safety Report 5836506-8 (Version None)
Quarter: 2008Q3

REPORT INFORMATION
  Report Type: 
  Country: None (occurrence: None)
  Receive Date: 20080806
  Receipt Date: 20080806
  Transmission Date: 20090109
  Serious: Yes (Hospitalization)
  Sender: FDA-Public Use
  Company Number: None

PATIENT
  Age: 79 Year
  Sex: Male
  Weight: 63.18 kg

DRUGS (1)
  1. DIGOXIN [Suspect]
     Dosage: 0.125 MG EVERYDAY PO
     Route: 048
     Dates: start: 20070614, end: 20080506

REACTIONS (1)
  - CARDIOACTIVE DRUG LEVEL INCREASED [None]
